FAERS Safety Report 8823539 (Version 1)
Quarter: 2012Q4

REPORT INFORMATION
  Report Type: 
  Country: US (occurrence: US)
  Receive Date: 20121003
  Receipt Date: 20121003
  Transmission Date: 20130627
  Serious: Yes (Other)
  Sender: FDA-Public Use
  Company Number: US-AMGEN-USASP2012062448

PATIENT
  Age: 76 Year
  Sex: Male

DRUGS (12)
  1. NPLATE [Suspect]
     Indication: AUTOIMMUNE THROMBOCYTOPENIA
     Dosage: 100 mug, qwk
     Route: 058
  2. NPLATE [Suspect]
     Dosage: 300 mug, qwk
  3. NPLATE [Suspect]
     Dosage: 400 mug, qwk
  4. LISINOPRIL [Concomitant]
  5. SPIRONOLACTONE [Concomitant]
  6. SOTALOL [Concomitant]
  7. COREG [Concomitant]
  8. LIPITOR [Concomitant]
  9. ASPIRIN [Concomitant]
     Dosage: 81 mg, UNK
  10. INSULIN [Concomitant]
  11. WARFARIN [Concomitant]
  12. RITUXIMAB [Concomitant]

REACTIONS (1)
  - Myelofibrosis [Unknown]
